FAERS Safety Report 10385280 (Version 1)
Quarter: 2014Q3

REPORT INFORMATION
  Report Type: Spontaneous
  Country: US (occurrence: None)
  Receive Date: 20140813
  Receipt Date: 20140813
  Transmission Date: 20150326
  Serious: Yes (Disabling)
  Sender: FDA-Public Use
  Company Number: None

PATIENT
  Age: 31 Year
  Sex: Male
  Weight: 83.92 kg

DRUGS (1)
  1. LEVOFLOXACIN [Suspect]
     Active Substance: LEVOFLOXACIN
     Dosage: 1  ONCE DA ILY --
     Dates: start: 20140710, end: 20140716

REACTIONS (8)
  - Myalgia [None]
  - Muscle spasms [None]
  - Muscle twitching [None]
  - Musculoskeletal stiffness [None]
  - Pain in extremity [None]
  - Faeces discoloured [None]
  - Tendon pain [None]
  - Gait disturbance [None]

NARRATIVE: CASE EVENT DATE: 20140725
